FAERS Safety Report 9279237 (Version 1)
Quarter: 2013Q2

REPORT INFORMATION
  Report Type: Spontaneous
  Country: DE (occurrence: None)
  Receive Date: 20130501
  Receipt Date: 20130501
  Transmission Date: 20140414
  Serious: Yes (Hospitalization)
  Sender: FDA-Public Use
  Company Number: AUR-APL-2013-03317

PATIENT
  Age: 48 Year
  Sex: Male

DRUGS (4)
  1. RAMIPRIL (RAMIPRIL) [Suspect]
     Indication: PRODUCT USED FOR UNKNOWN INDICATION
     Route: 048
     Dates: start: 20121208
  2. ZOLOFT (SERTRALINE) [Suspect]
     Route: 048
     Dates: start: 20121211, end: 20121212
  3. METFORMIN (METFORMIN) [Concomitant]
  4. DIPIPERON (PIPAMPERONE HYDROCHLORIDE) [Concomitant]

REACTIONS (1)
  - Ejaculation disorder [None]
